FAERS Safety Report 20722331 (Version 1)
Quarter: 2022Q2

REPORT INFORMATION
  Report Type: Spontaneous
  Country: US (occurrence: US)
  Receive Date: 20220418
  Receipt Date: 20220418
  Transmission Date: 20220721
  Serious: No
  Sender: FDA-Public Use
  Company Number: US-BRACCO-2022US00066

PATIENT
  Age: 74 Year
  Sex: Female

DRUGS (1)
  1. LIQUID POLIBAR PLUS [Suspect]
     Active Substance: BARIUM SULFATE
     Indication: Barium enema
     Dosage: UNK
     Dates: start: 20220106, end: 20220106

REACTIONS (2)
  - Drug ineffective [Unknown]
  - No adverse event [Unknown]

NARRATIVE: CASE EVENT DATE: 20220106
